FAERS Safety Report 25847000 (Version 1)
Quarter: 2025Q3

REPORT INFORMATION
  Report Type: Spontaneous
  Country: EU (occurrence: EU)
  Receive Date: 20250925
  Receipt Date: 20250925
  Transmission Date: 20251020
  Serious: Yes (Hospitalization)
  Sender: JOHNSON AND JOHNSON
  Company Number: None

PATIENT
  Age: 37 Year
  Sex: Male
  Weight: 101 kg

DRUGS (6)
  1. TOPIRAMATE [Suspect]
     Active Substance: TOPIRAMATE
     Indication: Suicide attempt
     Route: 048
     Dates: start: 20250804, end: 20250804
  2. VENLAFAXINE [Suspect]
     Active Substance: VENLAFAXINE HYDROCHLORIDE
     Indication: Suicide attempt
     Route: 048
     Dates: start: 20250804, end: 20250804
  3. CLORAZEPATE DIPOTASSIUM [Suspect]
     Active Substance: CLORAZEPATE DIPOTASSIUM
     Indication: Suicide attempt
     Route: 048
     Dates: start: 20250804, end: 20250804
  4. Venlafaxine 225 mg 30 capsules modified release [Concomitant]
     Indication: Depression
     Dosage: 225MG 1-0-0
     Route: 048
     Dates: start: 20200212, end: 20250803
  5. Clorazepate dipotassium 10 mg 30 capsules [Concomitant]
     Indication: Depression
     Route: 048
     Dates: start: 20191111, end: 20250803
  6. Topiramate 50 mg capsule [Concomitant]
     Indication: Depression
     Dosage: 50MG 1-0-1
     Route: 048
     Dates: start: 20191111, end: 20250803

REACTIONS (3)
  - Somnolence [Recovered/Resolved]
  - Depressed level of consciousness [Recovered/Resolved]
  - Intentional overdose [Recovered/Resolved]

NARRATIVE: CASE EVENT DATE: 20250804
